FAERS Safety Report 24613363 (Version 1)
Quarter: 2024Q4

REPORT INFORMATION
  Report Type: Spontaneous
  Country: CN (occurrence: CN)
  Receive Date: 20241113
  Receipt Date: 20241113
  Transmission Date: 20250114
  Serious: Yes (Hospitalization)
  Sender: PFIZER
  Company Number: CN-PFIZER INC-PV202400145818

PATIENT
  Age: 4 Year
  Sex: Male
  Weight: 15 kg

DRUGS (1)
  1. AZITHROMYCIN [Suspect]
     Active Substance: AZITHROMYCIN
     Indication: Upper respiratory tract infection
     Dosage: 0.15 G, 1X/DAY
     Route: 048
     Dates: start: 20241025, end: 20241028

REACTIONS (3)
  - Diarrhoea [Unknown]
  - Abnormal faeces [Unknown]
  - Decreased appetite [Unknown]

NARRATIVE: CASE EVENT DATE: 20241028
